FAERS Safety Report 5675532-9 (Version None)
Quarter: 2008Q2

REPORT INFORMATION
  Report Type: 
  Country: None (occurrence: None)
  Receive Date: 20080311
  Receipt Date: 20070919
  Transmission Date: 20081010
  Serious: Yes (Hospitalization)
  Sender: FDA-Public Use
  Company Number: PHEH2007US11414

PATIENT
  Age: 76 Year
  Sex: Female
  Weight: 79.8 kg

DRUGS (7)
  1. TRILEPTAL [Suspect]
     Indication: PROPHYLAXIS
     Dosage: 150 MG, BID, ORAL
     Route: 048
     Dates: start: 20070814, end: 20070817
  2. KEPPRA [Suspect]
     Indication: PROPHYLAXIS
  3. LISINOPRIL (LISINOPRIL DIHYDRATE) [Concomitant]
  4. TIMOLOL MALEATE [Concomitant]
  5. XALATAN [Concomitant]
  6. LIPITOR [Concomitant]
  7. HYDROCHLOROTHIAZIDE [Concomitant]

REACTIONS (1)
  - VOMITING [None]
